FAERS Safety Report 26161317 (Version 1)
Quarter: 2025Q4

REPORT INFORMATION
  Report Type: Spontaneous
  Country: EU (occurrence: EU)
  Receive Date: 20251216
  Receipt Date: 20251216
  Transmission Date: 20260118
  Serious: Yes (Other)
  Sender: BAXTER
  Company Number: None

PATIENT
  Sex: Female

DRUGS (1)
  1. DEXTROSE [Suspect]
     Active Substance: DEXTROSE MONOHYDRATE
     Route: 042
     Dates: start: 202510

REACTIONS (3)
  - Oedema [Unknown]
  - Infusion site extravasation [Unknown]
  - Product administration error [Unknown]
